FAERS Safety Report 22245670 (Version 1)
Quarter: 2023Q2

REPORT INFORMATION
  Report Type: Spontaneous
  Country: US (occurrence: None)
  Receive Date: 20230421
  Receipt Date: 20230421
  Transmission Date: 20230721
  Serious: No
  Sender: FDA-Public Use
  Company Number: None

PATIENT
  Age: 70 Year
  Sex: Female
  Weight: 77.11 kg

DRUGS (11)
  1. CAPECITABINE [Suspect]
     Active Substance: CAPECITABINE
     Indication: Breast cancer female
     Dosage: FREQUENCY : TWICE A DAY;?
     Route: 048
     Dates: start: 202210, end: 20230421
  2. APREPITANT [Concomitant]
  3. ELIQUIS [Concomitant]
     Active Substance: APIXABAN
  4. FONDAPARINUX [Concomitant]
     Active Substance: FONDAPARINUX
  5. FULVESTRANT [Concomitant]
     Active Substance: FULVESTRANT
  6. LEVOTHYROXINE [Concomitant]
  7. LOSARTAN [Concomitant]
  8. LOVENOX [Concomitant]
     Active Substance: ENOXAPARIN SODIUM
  9. MULTIVITAMIN [Concomitant]
  10. ONDANSETRON [Concomitant]
  11. VITAMIN D [Concomitant]
     Active Substance: VITAMIN D NOS

REACTIONS (2)
  - Disease progression [None]
  - Therapy cessation [None]
